FAERS Safety Report 16564969 (Version 1)
Quarter: 2019Q3

REPORT INFORMATION
  Report Type: Spontaneous
  Country: US (occurrence: US)
  Receive Date: 20190530
  Receipt Date: 20190530
  Transmission Date: 20191004
  Serious: Yes (Other)
  Sender: FDA-Public Use
  Company Number: None

PATIENT
  Age: 76 Year
  Sex: Female

DRUGS (16)
  1. LASIX [Concomitant]
     Active Substance: FUROSEMIDE
  2. K-TAB [Concomitant]
     Active Substance: POTASSIUM CHLORIDE
  3. CENTRUM SILVER [Concomitant]
     Active Substance: MINERALS\VITAMINS
  4. LORATADINE. [Concomitant]
     Active Substance: LORATADINE
  5. MELATONIN [Concomitant]
     Active Substance: MELATONIN
  6. BUPROPION. [Concomitant]
     Active Substance: BUPROPION
  7. GLIPIZIDE. [Concomitant]
     Active Substance: GLIPIZIDE
  8. ADEMPAS [Suspect]
     Active Substance: RIOCIGUAT
     Indication: PULMONARY HYPERTENSION
     Route: 048
     Dates: start: 201810
  9. LEVOTHYROXINE. [Concomitant]
     Active Substance: LEVOTHYROXINE
  10. TYLENOL [Concomitant]
     Active Substance: ACETAMINOPHEN
  11. HUMULIN N [Concomitant]
     Active Substance: INSULIN HUMAN
  12. CANTYL TOP OINT [Concomitant]
  13. ATORVASTATIN [Concomitant]
     Active Substance: ATORVASTATIN
  14. NYSTATIN. [Concomitant]
     Active Substance: NYSTATIN
  15. LOSARTAN. [Concomitant]
     Active Substance: LOSARTAN
  16. WARFARIN [Concomitant]
     Active Substance: WARFARIN

REACTIONS (1)
  - Abdominal hernia [None]

NARRATIVE: CASE EVENT DATE: 20190512
